FAERS Safety Report 8283090-8 (Version None)
Quarter: 2012Q2

REPORT INFORMATION
  Report Type: 
  Country: None (occurrence: None)
  Receive Date: 20120413
  Receipt Date: 20120404
  Transmission Date: 20120825
  Serious: Yes (Other)
  Sender: FDA-Public Use
  Company Number: DE-FRI-1000029115

PATIENT
  Age: 81 Year
  Sex: Female
  Weight: 75 kg

DRUGS (1)
  1. ROFLUMILAST [Suspect]
     Indication: CHRONIC OBSTRUCTIVE PULMONARY DISEASE
     Dosage: 500 MCG
     Route: 048
     Dates: start: 20110901, end: 20111001

REACTIONS (6)
  - CHEILITIS [None]
  - GASTROINTESTINAL DISORDER [None]
  - ARTHRALGIA [None]
  - ABDOMINAL PAIN [None]
  - DIARRHOEA [None]
  - FLATULENCE [None]
